FAERS Safety Report 24359980 (Version 1)
Quarter: 2024Q3

REPORT INFORMATION
  Report Type: Spontaneous
  Country: CN (occurrence: CN)
  Receive Date: 20240925
  Receipt Date: 20240925
  Transmission Date: 20241017
  Serious: Yes (Other)
  Sender: STRIDES
  Company Number: CN-STRIDES ARCOLAB LIMITED-2024SP012278

PATIENT
  Age: 60 Year
  Sex: Female
  Weight: 63.4 kg

DRUGS (4)
  1. PREDNISOLONE [Suspect]
     Active Substance: PREDNISOLONE
     Indication: Product used for unknown indication
     Dosage: UNK
     Route: 065
  2. BELINOSTAT [Suspect]
     Active Substance: BELINOSTAT
     Indication: Neoplasm malignant
     Dosage: UNK
     Route: 041
  3. ASPIRIN [Suspect]
     Active Substance: ASPIRIN
     Indication: Product used for unknown indication
     Dosage: UNK
     Route: 065
  4. RIBOCICLIB [Suspect]
     Active Substance: RIBOCICLIB
     Indication: Neoplasm malignant
     Dosage: UNK
     Route: 065

REACTIONS (1)
  - Atrial fibrillation [Unknown]
